FAERS Safety Report 4627289-8 (Version None)
Quarter: 2005Q2

REPORT INFORMATION
  Report Type: 
  Country: None (occurrence: None)
  Receive Date: 20050405
  Receipt Date: 20020801
  Transmission Date: 20051028
  Serious: Yes (Hospitalization)
  Sender: FDA-Public Use
  Company Number: HK-BOEHRINGER INGELHEIM PHARMACEUTICALS, INC.-2002-BP-03777BP

PATIENT
  Sex: Male
  Weight: 63 kg

DRUGS (8)
  1. MICARDIS [Suspect]
     Indication: CARDIOVASCULAR DISORDER
     Route: 048
     Dates: start: 20020709, end: 20020726
  2. MICARDIS [Suspect]
     Indication: CEREBROVASCULAR ACCIDENT PROPHYLAXIS
  3. RAMIPRIL [Suspect]
     Indication: CARDIOVASCULAR DISORDER
     Route: 048
     Dates: start: 20020101, end: 20020726
  4. RAMIPRIL [Suspect]
     Indication: CEREBROVASCULAR ACCIDENT PROPHYLAXIS
  5. ATENOLOL [Concomitant]
     Dates: end: 20020101
  6. ASPIRIN [Concomitant]
  7. NIFEDIPINE [Concomitant]
  8. ALLOPURINOL [Concomitant]

REACTIONS (3)
  - DIZZINESS [None]
  - HYPOTENSION [None]
  - RENAL IMPAIRMENT [None]
